FAERS Safety Report 10090741 (Version 1)
Quarter: 2014Q2

REPORT INFORMATION
  Report Type: Spontaneous
  Country: US (occurrence: US)
  Receive Date: 20140421
  Receipt Date: 20140421
  Transmission Date: 20141212
  Serious: Yes (Other)
  Sender: FDA-Public Use
  Company Number: US-GILEAD-2012-0059241

PATIENT
  Age: 42 Year
  Sex: Female

DRUGS (11)
  1. LETAIRIS [Suspect]
     Indication: PULMONARY HYPERTENSION
     Dosage: 10 MG, QD
     Dates: start: 201205, end: 20120625
  2. LETAIRIS [Suspect]
     Dosage: 5 UNK, UNK
     Route: 048
     Dates: start: 201204, end: 201205
  3. REVATIO [Concomitant]
  4. TREPROSTINIL [Concomitant]
  5. LEVOTHYROXINE [Concomitant]
  6. WARFARIN [Concomitant]
  7. FUROSEMIDE [Concomitant]
  8. HYDROCODONE/APAP [Concomitant]
  9. ONDANSETRON [Concomitant]
  10. PANTOPRAZOLE [Concomitant]
  11. GABAPENTIN [Concomitant]

REACTIONS (6)
  - Anaemia [Not Recovered/Not Resolved]
  - Peripheral swelling [Recovered/Resolved]
  - Dyspnoea [Unknown]
  - Palpitations [Unknown]
  - Nausea [Unknown]
  - Fatigue [Unknown]
